FAERS Safety Report 14651043 (Version 1)
Quarter: 2018Q1

REPORT INFORMATION
  Report Type: Other
  Country: JP (occurrence: JP)
  Receive Date: 20180316
  Receipt Date: 20180316
  Transmission Date: 20180509
  Serious: Yes (Other)
  Sender: FDA-Public Use
  Company Number: JP-GE HEALTHCARE LIFE SCIENCES-2018CSU001076

PATIENT

DRUGS (2)
  1. SOLACET F [Concomitant]
     Dosage: 80 ML/HR
     Route: 065
  2. OMNIPAQUE [Suspect]
     Active Substance: IOHEXOL
     Indication: CHRONIC MYELOID LEUKAEMIA
     Dosage: 100 ML, SINGLE
     Route: 041
     Dates: start: 20180305, end: 20180305

REACTIONS (3)
  - Nausea [Recovering/Resolving]
  - Respiratory distress [Recovering/Resolving]
  - Altered state of consciousness [Recovering/Resolving]

NARRATIVE: CASE EVENT DATE: 20180305
